FAERS Safety Report 5514829-X (Version None)
Quarter: 2007Q4

REPORT INFORMATION
  Report Type: 
  Country: None (occurrence: None)
  Receive Date: 20071109
  Receipt Date: 20071026
  Transmission Date: 20080405
  Serious: Yes (Other)
  Sender: FDA-Public Use
  Company Number: SPV1-2007-04729

PATIENT
  Age: 38 Year
  Sex: Female

DRUGS (2)
  1. LIALDA [Suspect]
     Dosage: 2.4 G, 1X/DAY:QD, ORAL
     Route: 048
     Dates: start: 20071001, end: 20071001
  2. MERCAPTOPURINE [Concomitant]

REACTIONS (4)
  - BONE MARROW FAILURE [None]
  - DRUG INTERACTION [None]
  - HAEMOGLOBIN DECREASED [None]
  - NEUTROPHIL COUNT DECREASED [None]
